FAERS Safety Report 9639980 (Version 1)
Quarter: 2013Q4

REPORT INFORMATION
  Report Type: Spontaneous
  Country: BR (occurrence: BR)
  Receive Date: 20131023
  Receipt Date: 20131023
  Transmission Date: 20140711
  Serious: Yes (Hospitalization)
  Sender: FDA-Public Use
  Company Number: BR-BIOMARINAP-BR-2013-101762

PATIENT
  Age: 14 Year
  Sex: Male

DRUGS (1)
  1. ALDURAZYME [Suspect]
     Indication: MUCOPOLYSACCHARIDOSIS I
     Dosage: 0.58 MG/KG, QW
     Route: 042

REACTIONS (5)
  - Nasopharyngitis [Recovered/Resolved]
  - Abdominal distension [Recovered/Resolved]
  - Respiratory fatigue [Recovered/Resolved]
  - Constipation [Recovered/Resolved]
  - Abdominal discomfort [Recovered/Resolved]
